FAERS Safety Report 6271364-1 (Version None)
Quarter: 2009Q3

REPORT INFORMATION
  Report Type: 
  Country: None (occurrence: None)
  Receive Date: 20090717
  Receipt Date: 20070731
  Transmission Date: 20100115
  Serious: Yes (Other)
  Sender: FDA-Public Use
  Company Number: US-ASTRAZENECA-2007UW02003

PATIENT
  Age: 454 Month
  Sex: Male
  Weight: 81.2 kg

DRUGS (15)
  1. SEROQUEL [Suspect]
     Indication: ANXIETY
     Route: 048
     Dates: start: 20031001, end: 20031201
  2. SEROQUEL [Suspect]
     Route: 048
     Dates: start: 20031106
  3. SPIRIVA [Concomitant]
     Indication: CHRONIC OBSTRUCTIVE PULMONARY DISEASE
     Dosage: DAILY
     Dates: start: 20050914
  4. PROVENTIL-HFA [Concomitant]
     Indication: CHRONIC OBSTRUCTIVE PULMONARY DISEASE
     Dosage: 1 PUFFS DAILY
     Dates: start: 20050914
  5. ADVAIR HFA [Concomitant]
     Indication: CHRONIC OBSTRUCTIVE PULMONARY DISEASE
     Dosage: 100 1 PUFF TWO TIMES A DAY, 100-50 MCG/DOSE, I TWO TIMES A DAY
     Dates: start: 20050914
  6. LISINOPRIL [Concomitant]
     Dates: start: 20070315
  7. LEXAPRO [Concomitant]
     Indication: ANXIETY
     Dates: start: 20051231
  8. ASPIRIN [Concomitant]
     Dates: start: 20070409
  9. TENORMIN [Concomitant]
     Indication: HYPERTENSION
     Dates: start: 20051231
  10. TRAZODONE [Concomitant]
     Dates: start: 20011114
  11. REMERON [Concomitant]
     Dates: start: 20011114
  12. ZOLOFT [Concomitant]
     Dates: start: 20031106
  13. IMDUR [Concomitant]
     Dates: start: 20041021
  14. SINGULAIR [Concomitant]
     Dates: start: 20040603
  15. SINEQUAN [Concomitant]
     Dates: start: 20040603

REACTIONS (5)
  - APPENDICITIS [None]
  - DIABETES MELLITUS [None]
  - MUSCULOSKELETAL PAIN [None]
  - OSTEOARTHRITIS [None]
  - TYPE 2 DIABETES MELLITUS [None]
